FAERS Safety Report 4379766-5 (Version None)
Quarter: 2004Q2

REPORT INFORMATION
  Report Type: 
  Country: None (occurrence: None)
  Receive Date: 20040617
  Receipt Date: 20040609
  Transmission Date: 20050107
  Serious: Yes (Hospitalization)
  Sender: FDA-Public Use
  Company Number: US-BRISTOL-MYERS SQUIBB COMPANY-12608832

PATIENT
  Age: 57 Year
  Sex: Female
  Weight: 69 kg

DRUGS (13)
  1. CARBOPLATIN [Suspect]
     Indication: NON-SMALL CELL LUNG CANCER
     Dosage: AUC 4.5; FIRST DOSE 01JUL2002
     Route: 042
     Dates: start: 20030319, end: 20030319
  2. PEMETREXED DISODIUM [Suspect]
     Indication: NON-SMALL CELL LUNG CANCER
     Dosage: FIRST DOSE: 21JUL2002
     Route: 042
     Dates: start: 20030319, end: 20030319
  3. FOLIC ACID [Concomitant]
     Indication: VITAMIN SUPPLEMENTATION
     Dates: start: 20020615
  4. DARVOCET-N 100 [Concomitant]
     Indication: HEADACHE
     Dates: start: 20020415
  5. ATIVAN [Concomitant]
     Indication: NAUSEA
     Dates: start: 20010701
  6. BENADRYL [Concomitant]
     Indication: NAUSEA
     Dates: start: 20010701
  7. HALDOL [Concomitant]
     Indication: NAUSEA
     Dates: start: 20010701
  8. CORTISOL [Concomitant]
     Indication: NAUSEA
     Dates: start: 20010701
  9. VICODIN [Concomitant]
     Indication: CHEST PAIN
     Dates: start: 20030603
  10. CITRACAL [Concomitant]
     Dates: start: 20010601
  11. EXTRA STRENGTH TYLENOL [Concomitant]
     Indication: PYREXIA
     Dates: start: 20020719
  12. PEPCID [Concomitant]
     Indication: DYSPEPSIA
     Dates: start: 20030131
  13. BENADRYL ALLERGY SINUS HEADACHE [Concomitant]
     Indication: ALLERGIC SINUSITIS
     Dates: start: 20030107

REACTIONS (2)
  - FEBRILE NEUTROPENIA [None]
  - PNEUMONIA [None]
